FAERS Safety Report 20430752 (Version 1)
Quarter: 2022Q1

REPORT INFORMATION
  Report Type: Report from Study
  Country: US (occurrence: US)
  Receive Date: 20220204
  Receipt Date: 20220204
  Transmission Date: 20220423
  Serious: Yes (Hospitalization)
  Sender: FDA-Public Use
  Company Number: US-PFIZER INC.-2021471781

PATIENT

DRUGS (8)
  1. PEGASPARGASE [Suspect]
     Active Substance: PEGASPARGASE
     Indication: Acute lymphocytic leukaemia
     Dosage: 2000 IU/M?, EVERY 2 WEEKS, D15 AND D43
     Route: 042
     Dates: start: 20210208, end: 20210315
  2. CYCLOPHOSPHAMIDE [Suspect]
     Active Substance: CYCLOPHOSPHAMIDE
     Indication: Acute lymphocytic leukaemia
     Dosage: 1000 MG/M?, EVERY 4 WEEKS, D1 AND D29
     Route: 042
     Dates: start: 20210125, end: 20210301
  3. CYTARABINE [Suspect]
     Active Substance: CYTARABINE
     Indication: Acute lymphocytic leukaemia
     Dosage: 2240 MG (75 MG/M?), ON DAYS 1-4, 8-11, 29-32, AND 36-39
     Route: 042
     Dates: start: 20210125, end: 20210311
  4. MERCAPTOPURINE [Suspect]
     Active Substance: MERCAPTOPURINE
     Indication: Acute lymphocytic leukaemia
     Dosage: 1550 MG (60 MG/M?), ON DAYS 1-14 AND 29-42
     Route: 048
     Dates: start: 20210301, end: 20210314
  5. VINCRISTINE SULFATE [Suspect]
     Active Substance: VINCRISTINE SULFATE
     Indication: Acute lymphocytic leukaemia
     Dosage: 8 MG (1.5 MG/M?), EVERY 1 WEEK, ON DAYS 1, 8, 15, AND 22
     Route: 065
     Dates: start: 20210208, end: 20210322
  6. TN UNSPECIFIED [Concomitant]
     Indication: Acute lymphocytic leukaemia
     Dosage: 15 MG, ON DAYS 1, 8, 15, AND 22
     Route: 037
     Dates: start: 20210127, end: 20210217
  7. TN UNSPECIFIED [Concomitant]
     Indication: Anxiety
     Dosage: UNK
     Route: 065
  8. TN UNSPECIFIED [Concomitant]
     Indication: Anxiety
     Dosage: UNK
     Route: 065

REACTIONS (1)
  - Sinus tachycardia [Recovered/Resolved]

NARRATIVE: CASE EVENT DATE: 20210324
